FAERS Safety Report 6821294-9 (Version None)
Quarter: 2010Q3

REPORT INFORMATION
  Report Type: 
  Country: None (occurrence: None)
  Receive Date: 20100707
  Receipt Date: 20080805
  Transmission Date: 20110219
  Serious: No
  Sender: FDA-Public Use
  Company Number: US-PFIZER INC-2008064116

PATIENT
  Sex: Male
  Weight: 68.181 kg

DRUGS (2)
  1. ZOLOFT [Suspect]
     Indication: DEPRESSION
     Dates: start: 20080401, end: 20080701
  2. ZOLOFT [Suspect]
     Indication: ANXIETY

REACTIONS (7)
  - DIZZINESS [None]
  - DRUG INEFFECTIVE [None]
  - HEADACHE [None]
  - INSOMNIA [None]
  - NAUSEA [None]
  - PALLOR [None]
  - VOMITING [None]
